FAERS Safety Report 4491776-6 (Version None)
Quarter: 2004Q4

REPORT INFORMATION
  Report Type: 
  Country: None (occurrence: None)
  Receive Date: 20041101
  Receipt Date: 20041020
  Transmission Date: 20050328
  Serious: No
  Sender: FDA-Public Use
  Company Number: 2004UW17828

PATIENT
  Age: 36 Year
  Sex: Male

DRUGS (10)
  1. NEXIUM [Suspect]
     Indication: PROPHYLAXIS
     Dosage: 40 MG QD PO
     Route: 048
     Dates: end: 20040706
  2. TEMODAL [Suspect]
     Indication: OLIGODENDROGLIOMA
     Dosage: 400 MG QD PO
     Route: 048
     Dates: start: 20040628, end: 20040702
  3. TEMODAL [Suspect]
     Indication: OLIGODENDROGLIOMA
     Dosage: 400 MG QD PO
     Route: 048
     Dates: start: 20040101, end: 20040101
  4. TEMODAL [Suspect]
     Indication: OLIGODENDROGLIOMA
     Dosage: 400 MG QD PO
     Route: 048
     Dates: start: 20040823, end: 20040827
  5. TEGRETOL [Suspect]
     Indication: CONVULSION
     Dosage: 1200 MG QD PO
     Route: 048
  6. CELEBREX [Suspect]
     Indication: PAIN
     Dosage: 100 MG QD PO
     Route: 048
     Dates: start: 20040629, end: 20040705
  7. SINTROM [Suspect]
     Indication: PULMONARY EMBOLISM
     Dosage: 5-6 MG QD
     Dates: start: 20040701
  8. FRAXIPARINE [Suspect]
     Indication: THROMBOSIS PROPHYLAXIS
     Dosage: 0.16 ML QD SQ
     Route: 058
  9. TRAMAL [Concomitant]
  10. CALCIUM AND VITAMIN D [Concomitant]

REACTIONS (4)
  - DRUG INEFFECTIVE [None]
  - DRUG INTERACTION [None]
  - HEPATOCELLULAR DAMAGE [None]
  - PULMONARY EMBOLISM [None]
